FAERS Safety Report 23135770 (Version 2)
Quarter: 2023Q4

REPORT INFORMATION
  Report Type: Spontaneous
  Country: US (occurrence: US)
  Receive Date: 20231101
  Receipt Date: 20231116
  Transmission Date: 20240110
  Serious: No
  Sender: FDA-Public Use
  Company Number: US-Blueprint Medicines Corporation-1643

PATIENT
  Age: 42 Year
  Sex: Female
  Weight: 124.4 kg

DRUGS (1)
  1. AYVAKIT [Suspect]
     Active Substance: AVAPRITINIB
     Indication: Mast cell activation syndrome
     Route: 065
     Dates: end: 20231025

REACTIONS (14)
  - Dizziness postural [Unknown]
  - Dizziness [Unknown]
  - Hepatic pain [Unknown]
  - Liver disorder [Unknown]
  - Cognitive disorder [Recovering/Resolving]
  - Nausea [Unknown]
  - Diarrhoea [Unknown]
  - Hyperbilirubinaemia [Unknown]
  - Gilbert^s syndrome [Unknown]
  - Non-alcoholic fatty liver [Unknown]
  - Migraine [Unknown]
  - Blood pressure increased [Unknown]
  - Off label use [Unknown]
  - Product dispensing error [Unknown]
